FAERS Safety Report 9525106 (Version 1)
Quarter: 2013Q3

REPORT INFORMATION
  Report Type: Spontaneous
  Country: US (occurrence: US)
  Receive Date: 20130916
  Receipt Date: 20130916
  Transmission Date: 20140515
  Serious: Yes (Hospitalization)
  Sender: FDA-Public Use
  Company Number: US-MYLANLABS-2013S1019795

PATIENT
  Age: 66 Year
  Sex: Female

DRUGS (10)
  1. CIPROFLOXACIN [Suspect]
     Indication: URINARY TRACT INFECTION
     Route: 065
  2. CLOZAPINE [Interacting]
     Indication: SCHIZOPHRENIA, PARANOID TYPE
     Dosage: 200MG BEFORE MEALS AND AT BEDTIME
     Route: 048
  3. AZITHROMYCIN [Concomitant]
     Indication: PNEUMONIA BACTERIAL
     Route: 048
  4. ESCITALOPRAM [Concomitant]
     Route: 065
  5. LEVOTHYROXINE SODIUM [Concomitant]
     Route: 065
  6. BUSPIRONE [Concomitant]
     Route: 065
  7. DONEPEZIL [Concomitant]
     Route: 065
  8. OMEPRAZOLE [Concomitant]
     Route: 065
  9. DILTIAZEM [Concomitant]
     Route: 065
  10. PARACETAMOL [Concomitant]
     Route: 065

REACTIONS (2)
  - Neuroleptic malignant syndrome [Recovered/Resolved]
  - Potentiating drug interaction [Recovered/Resolved]
